FAERS Safety Report 4284627-6 (Version None)
Quarter: 2004Q1

REPORT INFORMATION
  Report Type: 
  Country: None (occurrence: None)
  Receive Date: 20040130
  Receipt Date: 20040130
  Transmission Date: 20041129
  Serious: Yes (Hospitalization)
  Sender: FDA-Public Use
  Company Number: None

PATIENT
  Age: 81 Year
  Sex: Male
  Weight: 98.1 kg

DRUGS (12)
  1. GLIPIZIDE 10 MG TAB, SA [Suspect]
     Dosage: 10 MG, BID, BY MOUTH
     Dates: start: 20020531, end: 20030822
  2. ASPIRIN [Concomitant]
  3. CALCIUM ACETATE [Concomitant]
  4. GABAPENTIN [Concomitant]
  5. KLONOPIN [Concomitant]
  6. DILTIAZEM HCL [Concomitant]
  7. LACTULOSE [Concomitant]
  8. LISINOPRIL [Concomitant]
  9. PROPRANOLOL HCL [Concomitant]
  10. EPOGEN [Concomitant]
  11. CITALOPRAM HYDROBROMIDE [Concomitant]
  12. MULTI-VITAMIN [Concomitant]

REACTIONS (2)
  - HYPOGLYCAEMIA [None]
  - MENTAL STATUS CHANGES [None]
